FAERS Safety Report 19884987 (Version 1)
Quarter: 2021Q3

REPORT INFORMATION
  Report Type: Spontaneous
  Country: US (occurrence: US)
  Receive Date: 20210927
  Receipt Date: 20210927
  Transmission Date: 20211014
  Serious: Yes (Life-Threatening, Hospitalization, Other)
  Sender: FDA-Public Use
  Company Number: None

PATIENT
  Age: 71 Year
  Sex: Male
  Weight: 83.25 kg

DRUGS (17)
  1. BUDESONIDE. [Concomitant]
     Active Substance: BUDESONIDE
  2. DABIGATRAN [Concomitant]
     Active Substance: DABIGATRAN
  3. ETEXILATE [Concomitant]
  4. METOPROLOL. [Concomitant]
     Active Substance: METOPROLOL
  5. NITROGLYCERIN. [Concomitant]
     Active Substance: NITROGLYCERIN
  6. DIHYDROERGOTAMINE MESYLATE. [Suspect]
     Active Substance: DIHYDROERGOTAMINE MESYLATE
     Indication: HEADACHE
     Dates: start: 20181001, end: 20210325
  7. BISULFATE [Concomitant]
  8. CHOLECALCIF [Concomitant]
  9. PANTOPRAZOLE [Concomitant]
     Active Substance: PANTOPRAZOLE
  10. TIOTROPIUM [Concomitant]
     Active Substance: TIOTROPIUM
  11. ROSUVASTATIN. [Concomitant]
     Active Substance: ROSUVASTATIN
  12. LORATADINE. [Concomitant]
     Active Substance: LORATADINE
  13. CLOPIDOGREL [Concomitant]
     Active Substance: CLOPIDOGREL BISULFATE
  14. LORATADINE. [Concomitant]
     Active Substance: LORATADINE
  15. LOSARTAN. [Concomitant]
     Active Substance: LOSARTAN
  16. MONTELUKAST [Concomitant]
     Active Substance: MONTELUKAST SODIUM
  17. GALCANEZUMABOGLM [Concomitant]

REACTIONS (3)
  - Myocardial infarction [None]
  - Arteriospasm coronary [None]
  - Myocardial ischaemia [None]

NARRATIVE: CASE EVENT DATE: 20210324
